FAERS Safety Report 12948831 (Version 2)
Quarter: 2016Q4

REPORT INFORMATION
  Report Type: Report from Study
  Country: MX (occurrence: MX)
  Receive Date: 20161116
  Receipt Date: 20161124
  Transmission Date: 20170207
  Serious: Yes (Hospitalization, Other)
  Sender: FDA-Public Use
  Company Number: MX-AMGEN-MEXSL2016114638

PATIENT
  Age: 69 Year
  Sex: Female

DRUGS (1)
  1. REPATHA [Suspect]
     Active Substance: EVOLOCUMAB
     Indication: HYPERCHOLESTEROLAEMIA
     Dosage: 140 MG/DL, Q2WK (Q15 DAY)
     Route: 058
     Dates: start: 20160808

REACTIONS (4)
  - Dizziness [Not Recovered/Not Resolved]
  - Bone pain [Recovered/Resolved]
  - Inappropriate schedule of drug administration [Unknown]
  - Hypertensive crisis [Recovering/Resolving]

NARRATIVE: CASE EVENT DATE: 20160808
